FAERS Safety Report 9593280 (Version 1)
Quarter: 2013Q3

REPORT INFORMATION
  Report Type: Spontaneous
  Country: US (occurrence: None)
  Receive Date: 20130930
  Receipt Date: 20130930
  Transmission Date: 20140515
  Serious: No
  Sender: FDA-Public Use
  Company Number: 1000046100

PATIENT
  Age: 63 Year
  Sex: Female

DRUGS (5)
  1. LINZESS (LINACLOTIDE) (145 MICROGRAM, CAPSULES) [Suspect]
     Indication: IRRITABLE BOWEL SYNDROME
     Route: 048
     Dates: start: 20130618, end: 20130620
  2. KLONOPIN [Concomitant]
  3. TRAZODONE (TRAZODONE) (TRAZODONE) [Concomitant]
  4. SYNTHROID (LEVOTHYROXINE SODIUM) (LEVOTHYROXINE SODIUM) [Concomitant]
  5. PRISTIQ (DEVENLAFAXINE SUCCINATE) (DESVENLAFAXINE SUCCINATE) [Concomitant]

REACTIONS (3)
  - Headache [None]
  - Pruritus [None]
  - Diarrhoea [None]
